FAERS Safety Report 17121274 (Version 1)
Quarter: 2019Q4

REPORT INFORMATION
  Report Type: Spontaneous
  Country: US (occurrence: US)
  Receive Date: 20191205
  Receipt Date: 20191205
  Transmission Date: 20200122
  Serious: Yes (Death)
  Sender: FDA-Public Use
  Company Number: None

PATIENT
  Age: 68 Year
  Sex: Male

DRUGS (13)
  1. ATORVASTATIN [Concomitant]
     Active Substance: ATORVASTATIN
  2. LANTUS [Concomitant]
     Active Substance: INSULIN GLARGINE
  3. NOVOLOG [Concomitant]
     Active Substance: INSULIN ASPART
  4. CLOPIDEGREL [Concomitant]
  5. ELIQUIS [Concomitant]
     Active Substance: APIXABAN
  6. ALPRAZALAM [Concomitant]
  7. DILTIAZEM. [Concomitant]
     Active Substance: DILTIAZEM
  8. QUETIAPINE. [Concomitant]
     Active Substance: QUETIAPINE
  9. ZIOPTAN [Concomitant]
     Active Substance: TAFLUPROST
  10. CINACALCET. [Suspect]
     Active Substance: CINACALCET
     Indication: ESSENTIAL HYPERTENSION
     Route: 048
     Dates: start: 20190723, end: 20191201
  11. METOPROLOL. [Concomitant]
     Active Substance: METOPROLOL
  12. ALLOPURINOL. [Concomitant]
     Active Substance: ALLOPURINOL
  13. WARFARIN [Concomitant]
     Active Substance: WARFARIN

REACTIONS (1)
  - Death [None]

NARRATIVE: CASE EVENT DATE: 20191201
